FAERS Safety Report 16214377 (Version 3)
Quarter: 2019Q4

REPORT INFORMATION
  Report Type: Spontaneous
  Country: US (occurrence: US)
  Receive Date: 20190418
  Receipt Date: 20191209
  Transmission Date: 20200122
  Serious: Yes (Death, Other)
  Sender: FDA-Public Use
  Company Number: US-ASTRAZENECA-2019SE09962

PATIENT
  Age: 92 Year
  Sex: Female
  Weight: 53.5 kg

DRUGS (68)
  1. PRILOSEC [Suspect]
     Active Substance: OMEPRAZOLE MAGNESIUM
     Dosage: 40 MG; GENERIC
     Route: 048
     Dates: start: 20130102
  2. OFLOXACIN. [Concomitant]
     Active Substance: OFLOXACIN
     Dates: start: 20140528
  3. AMOX/CLAVULA [Concomitant]
     Dates: start: 20140606
  4. CHOLESTYRAMINE. [Concomitant]
     Active Substance: CHOLESTYRAMINE
     Dates: start: 20160815
  5. XALATAN [Concomitant]
     Active Substance: LATANOPROST
     Dates: start: 20130102
  6. PROLIA [Concomitant]
     Active Substance: DENOSUMAB
     Dates: start: 20151125
  7. COLACE [Concomitant]
     Active Substance: DOCUSATE SODIUM
     Dates: start: 20141015
  8. DELSYM [Concomitant]
     Active Substance: DEXTROMETHORPHAN
     Dates: start: 20130417
  9. PRILOSEC [Suspect]
     Active Substance: OMEPRAZOLE MAGNESIUM
     Dosage: 40 MG; GENERIC
     Route: 048
     Dates: start: 20150327
  10. PRILOSEC [Suspect]
     Active Substance: OMEPRAZOLE MAGNESIUM
     Dosage: 40 MG; GENERIC
     Route: 048
     Dates: start: 20160617
  11. PRILOSEC [Suspect]
     Active Substance: OMEPRAZOLE MAGNESIUM
     Dosage: 40 MG; GENERIC
     Route: 048
     Dates: start: 20140115
  12. LEVOFLOXACIN. [Concomitant]
     Active Substance: LEVOFLOXACIN
     Indication: INFECTION
     Dates: start: 2015
  13. PREDNISONE. [Concomitant]
     Active Substance: PREDNISONE
     Dates: start: 20121217
  14. METHYLPRED [Concomitant]
     Active Substance: METHYLPREDNISOLONE
     Dates: start: 20130910
  15. QUESTRAN [Concomitant]
     Active Substance: CHOLESTYRAMINE
     Indication: DIARRHOEA
     Dates: start: 20161101
  16. PRILOSEC [Suspect]
     Active Substance: OMEPRAZOLE MAGNESIUM
     Dosage: 40 MG; GENERIC
     Route: 048
     Dates: start: 20130806
  17. PRILOSEC [Suspect]
     Active Substance: OMEPRAZOLE MAGNESIUM
     Dosage: 40 MG; GENERIC
     Route: 048
     Dates: start: 20140311
  18. SMZ/TMP [Concomitant]
     Active Substance: SULFAMETHOXAZOLE\TRIMETHOPRIM
     Dates: start: 20141013
  19. TAMIFLU [Concomitant]
     Active Substance: OSELTAMIVIR PHOSPHATE
     Dates: start: 20150109
  20. ACETAMINOPHEN. [Concomitant]
     Active Substance: ACETAMINOPHEN
     Dates: start: 20150505
  21. VITAMIN D3 [Concomitant]
     Active Substance: CHOLECALCIFEROL
     Dates: start: 20130102
  22. PRILOSEC [Suspect]
     Active Substance: OMEPRAZOLE MAGNESIUM
     Dosage: 40 MG; GENERIC
     Route: 048
     Dates: start: 20131013
  23. PRILOSEC [Suspect]
     Active Substance: OMEPRAZOLE MAGNESIUM
     Dosage: 40 MG; GENERIC
     Route: 048
     Dates: start: 20131220
  24. RANITIDINE. [Concomitant]
     Active Substance: RANITIDINE
     Dates: start: 20121204
  25. HUMULIN NOS [Concomitant]
     Active Substance: INSULIN HUMAN
     Dates: start: 20121231
  26. MAGNESIUM OXIDE. [Concomitant]
     Active Substance: MAGNESIUM OXIDE
     Dates: start: 20161101
  27. TOLTERODINE TARTRATE. [Concomitant]
     Active Substance: TOLTERODINE TARTRATE
     Dates: start: 20150428
  28. NEXIUM [Suspect]
     Active Substance: ESOMEPRAZOLE MAGNESIUM
     Route: 048
  29. PRILOSEC [Suspect]
     Active Substance: OMEPRAZOLE MAGNESIUM
     Dosage: 40 MG; GENERIC
     Route: 048
     Dates: start: 20140617
  30. PRILOSEC [Suspect]
     Active Substance: OMEPRAZOLE MAGNESIUM
     Dosage: 40 MG; GENERIC
     Route: 048
     Dates: start: 20160111
  31. PRILOSEC [Suspect]
     Active Substance: OMEPRAZOLE MAGNESIUM
     Dosage: 40 MG; GENERIC
     Route: 048
     Dates: start: 20160406
  32. LISINOPRIL. [Concomitant]
     Active Substance: LISINOPRIL
     Indication: HYPERTENSION
     Dates: start: 2013
  33. AZITHROMYCIN ANHYDROUS. [Concomitant]
     Active Substance: AZITHROMYCIN ANHYDROUS
     Indication: INFECTION
     Dates: start: 2015
  34. DETROL LA [Concomitant]
     Active Substance: TOLTERODINE TARTRATE
     Dates: start: 20121023
  35. HYDROCO/APAP [Concomitant]
     Active Substance: ACETAMINOPHEN\HYDROCODONE
     Dates: start: 20130110
  36. ERYTHROMYCIN. [Concomitant]
     Active Substance: ERYTHROMYCIN
     Dates: start: 20140606
  37. ESCITALOPRAM [Concomitant]
     Active Substance: ESCITALOPRAM OXALATE
     Dates: start: 20150606
  38. EXELON [Concomitant]
     Active Substance: RIVASTIGMINE TARTRATE
     Dates: start: 20150916
  39. MIRTAZAPINE. [Concomitant]
     Active Substance: MIRTAZAPINE
     Dates: start: 20160330
  40. ATORVASTATIN CALCIUM. [Concomitant]
     Active Substance: ATORVASTATIN CALCIUM
     Dates: start: 20111228
  41. LOPERAMIDE [Concomitant]
     Active Substance: LOPERAMIDE
     Dates: start: 20150603
  42. PLETAL [Concomitant]
     Active Substance: CILOSTAZOL
     Dates: start: 20130417
  43. ZANTAC [Concomitant]
     Active Substance: RANITIDINE HYDROCHLORIDE
     Dates: start: 20130417
  44. PRILOSEC [Suspect]
     Active Substance: OMEPRAZOLE MAGNESIUM
     Dosage: 40 MG; GENERIC
     Route: 048
     Dates: start: 20130206
  45. PRILOSEC [Suspect]
     Active Substance: OMEPRAZOLE MAGNESIUM
     Dosage: 40 MG; GENERIC
     Route: 048
     Dates: start: 20140925
  46. PRILOSEC [Suspect]
     Active Substance: OMEPRAZOLE MAGNESIUM
     Dosage: 40 MG; GENERIC
     Route: 048
     Dates: start: 20141202
  47. PRILOSEC [Suspect]
     Active Substance: OMEPRAZOLE MAGNESIUM
     Dosage: 40 MG; GENERIC
     Route: 048
     Dates: start: 20150823
  48. CIPROFLOXACIN. [Concomitant]
     Active Substance: CIPROFLOXACIN
     Indication: INFECTION
     Dates: start: 2015
  49. CARVEDILOL. [Concomitant]
     Active Substance: CARVEDILOL
     Dates: start: 20121023
  50. COLCRYS [Concomitant]
     Active Substance: COLCHICINE
     Dates: start: 20121217
  51. TRAMADOL. [Concomitant]
     Active Substance: TRAMADOL
     Dates: start: 20130220
  52. FENTANYL. [Concomitant]
     Active Substance: FENTANYL
     Dates: start: 20130620
  53. DIOVAN [Concomitant]
     Active Substance: VALSARTAN
     Dates: start: 20130417
  54. PRILOSEC [Suspect]
     Active Substance: OMEPRAZOLE MAGNESIUM
     Route: 048
  55. PRILOSEC [Suspect]
     Active Substance: OMEPRAZOLE MAGNESIUM
     Dosage: 40 MG; GENERIC
     Route: 048
     Dates: start: 20160908
  56. PRILOSEC [Suspect]
     Active Substance: OMEPRAZOLE MAGNESIUM
     Dosage: 40 MG; GENERIC
     Route: 048
     Dates: start: 20150113
  57. DIAZEPAM. [Concomitant]
     Active Substance: DIAZEPAM
     Dates: start: 20131113
  58. KETOROLAC [Concomitant]
     Active Substance: KETOROLAC TROMETHAMINE
     Dates: start: 20140527
  59. CEFDINIR. [Concomitant]
     Active Substance: CEFDINIR
     Dates: start: 20160815
  60. ZOSTER [Concomitant]
     Dates: start: 20121217
  61. MOTRIN [Concomitant]
     Active Substance: IBUPROFEN
  62. ELAVIL [Concomitant]
     Active Substance: AMITRIPTYLINE HYDROCHLORIDE
     Dates: start: 20130417
  63. PRILOSEC [Suspect]
     Active Substance: OMEPRAZOLE MAGNESIUM
     Dosage: 40 MG; GENERIC
     Route: 048
     Dates: start: 20130103
  64. PRILOSEC [Suspect]
     Active Substance: OMEPRAZOLE MAGNESIUM
     Dosage: 40 MG; GENERIC
     Route: 048
     Dates: start: 20160330
  65. OXYCODONE AND ACETAMINOPHEN [Concomitant]
     Active Substance: ACETAMINOPHEN\OXYCODONE HYDROCHLORIDE
     Dates: start: 20131028
  66. AMIODARONE [Concomitant]
     Active Substance: AMIODARONE
     Dates: start: 20150505
  67. LASIX [Concomitant]
     Active Substance: FUROSEMIDE
     Dates: start: 20161101
  68. LORTAB [Concomitant]
     Active Substance: ACETAMINOPHEN\HYDROCODONE BITARTRATE
     Dates: start: 20130417

REACTIONS (6)
  - Hyperparathyroidism secondary [Unknown]
  - Death [Fatal]
  - Renal injury [Unknown]
  - Rebound acid hypersecretion [Unknown]
  - Renal failure [Unknown]
  - Chronic kidney disease [Recovered/Resolved]

NARRATIVE: CASE EVENT DATE: 20160503
